FAERS Safety Report 19361672 (Version 1)
Quarter: 2021Q2

REPORT INFORMATION
  Report Type: Report from Study
  Country: None (occurrence: US)
  Receive Date: 20210602
  Receipt Date: 20210602
  Transmission Date: 20210717
  Serious: No
  Sender: FDA-Public Use
  Company Number: US-MDD US OPERATIONS-USW202005-001081

PATIENT
  Age: 75 Year
  Sex: Male
  Weight: 92.98 kg

DRUGS (4)
  1. INBRIJA [Concomitant]
     Active Substance: LEVODOPA
     Dosage: NOT PROVIDED
  2. APOKYN [Suspect]
     Active Substance: APOMORPHINE HYDROCHLORIDE
     Indication: PARKINSON^S DISEASE
     Route: 058
     Dates: start: 20200518
  3. SINEMET [Concomitant]
     Active Substance: CARBIDOPA\LEVODOPA
     Dosage: NOT PROVIDED
  4. DONEPEZIL. [Concomitant]
     Active Substance: DONEPEZIL

REACTIONS (7)
  - Dizziness postural [Unknown]
  - Muscle tightness [Unknown]
  - Nasal congestion [Unknown]
  - Drug ineffective [Unknown]
  - Asthenia [Unknown]
  - Somnolence [Unknown]
  - Nausea [Recovered/Resolved]

NARRATIVE: CASE EVENT DATE: 2020
